FAERS Safety Report 6399139-3 (Version None)
Quarter: 2009Q4

REPORT INFORMATION
  Report Type: 
  Country: None (occurrence: None)
  Receive Date: 20091008
  Receipt Date: 20090923
  Transmission Date: 20100525
  Serious: Yes (Other)
  Sender: FDA-Public Use
  Company Number: 2009SP028374

PATIENT
  Sex: Male

DRUGS (1)
  1. CLARITIN [Suspect]
     Indication: DRUG EXPOSURE VIA BREAST MILK
     Dosage: TRMA
     Route: 062
     Dates: start: 20090412

REACTIONS (1)
  - DRUG EXPOSURE VIA BREAST MILK [None]
